FAERS Safety Report 10196697 (Version 1)
Quarter: 2014Q2

REPORT INFORMATION
  Report Type: Spontaneous
  Country: DK (occurrence: FR)
  Receive Date: 20140527
  Receipt Date: 20140527
  Transmission Date: 20141212
  Serious: Yes (Other)
  Sender: FDA-Public Use
  Company Number: FR-FRI-1000067556

PATIENT
  Age: 81 Year
  Sex: Male

DRUGS (4)
  1. ESCITALOPRAM [Suspect]
     Dosage: 5 MG
     Route: 048
     Dates: start: 20130129
  2. EXELON 4.6 MG/24 H [Suspect]
     Dosage: 4.6 MG
     Route: 062
     Dates: start: 20130308, end: 20130410
  3. PRADAXA [Suspect]
     Dosage: 220 MG
     Route: 048
  4. DOLIPRANE [Suspect]
     Dosage: IF NEEDED
     Route: 048

REACTIONS (2)
  - Disinhibition [Recovered/Resolved]
  - Hypersexuality [Recovered/Resolved]
